FAERS Safety Report 8149742-5 (Version None)
Quarter: 2012Q1

REPORT INFORMATION
  Report Type: 
  Country: None (occurrence: None)
  Receive Date: 20120218
  Receipt Date: 20111122
  Transmission Date: 20120608
  Serious: No
  Sender: FDA-Public Use
  Company Number: US-ALLERGAN-1115322US

PATIENT
  Age: 58 Year
  Sex: Female

DRUGS (3)
  1. BOTULINUM TOXIN TYPE A [Suspect]
     Indication: HEADACHE
     Dosage: UNK
     Route: 030
     Dates: start: 20111019, end: 20111019
  2. OXYCONTIN [Concomitant]
     Indication: PAIN
     Dosage: UNK
  3. NORTRIPTYLINE HCL [Concomitant]
     Indication: PAIN
     Dosage: 10 MG, UNK
     Route: 048

REACTIONS (4)
  - POST-TRAUMATIC NECK SYNDROME [None]
  - DYSPHAGIA [None]
  - MUSCLE STRAIN [None]
  - MUSCULAR WEAKNESS [None]
